FAERS Safety Report 4677727-X (Version None)
Quarter: 2005Q2

REPORT INFORMATION
  Report Type: 
  Country: None (occurrence: None)
  Receive Date: 20050526
  Receipt Date: 20050526
  Transmission Date: 20051028
  Serious: Yes (Other)
  Sender: FDA-Public Use
  Company Number: None

PATIENT
  Age: 60 Year
  Sex: Male

DRUGS (5)
  1. AFRIN [Suspect]
     Indication: NASOPHARYNGITIS
     Dosage: NAS AER SPRAY
     Route: 045
  2. COZAAR [Concomitant]
  3. LIPITOR [Concomitant]
  4. FLOMAX [Concomitant]
  5. VITAMINS/MINERALS/DIETARY SUPPLEMENTS (NOS) [Concomitant]

REACTIONS (5)
  - BENIGN PROSTATIC HYPERPLASIA [None]
  - CONDITION AGGRAVATED [None]
  - DISCOMFORT [None]
  - PROSTATITIS [None]
  - URINARY RETENTION [None]
